FAERS Safety Report 6160335-1 (Version None)
Quarter: 2009Q2

REPORT INFORMATION
  Report Type: 
  Country: None (occurrence: None)
  Receive Date: 20090416
  Receipt Date: 20090401
  Transmission Date: 20091009
  Serious: Yes (Hospitalization)
  Sender: FDA-Public Use
  Company Number: 2009000991

PATIENT
  Age: 66 Year
  Sex: Male

DRUGS (11)
  1. ERLOTINIB (ERLOTINIB) (TABLET) (ERLOTINIB) [Suspect]
     Indication: PANCREATIC CARCINOMA
     Dosage: (100 MG, QD), ORAL
     Route: 048
     Dates: start: 20080903, end: 20090107
  2. GEMCITABINE [Concomitant]
  3. MEGESTROL ACETATE [Concomitant]
  4. PANCREASE (PANCRELIPASE) [Concomitant]
  5. METOCLOPRAMIDE [Concomitant]
  6. SMECTITE (SMECTITE) [Concomitant]
  7. LOPERAMIDE [Concomitant]
  8. POLYCARBOPHIL CALCIUM (POLYCARBOPHIL CALCIUM) [Concomitant]
  9. LEVOSULPIRIDE (LEVOSULPIRIDE) [Concomitant]
  10. FEROBA (FEROBA) [Concomitant]
  11. VENITOL (DIOSMIN) [Concomitant]

REACTIONS (3)
  - CHOLANGITIS [None]
  - HEPATITIS [None]
  - LIVER ABSCESS [None]
